FAERS Safety Report 9202472 (Version 2)
Quarter: 2013Q2

REPORT INFORMATION
  Report Type: Spontaneous
  Country: AU (occurrence: AU)
  Receive Date: 20130401
  Receipt Date: 20130613
  Transmission Date: 20140414
  Serious: Yes (Death, Hospitalization)
  Sender: FDA-Public Use
  Company Number: AU-B.I. PHARMACEUTICALS,INC./RIDGEFIELD-2013-AU-00377AU

PATIENT
  Sex: Female

DRUGS (4)
  1. PRADAXA [Suspect]
     Indication: CEREBROVASCULAR ACCIDENT PROPHYLAXIS
     Dates: start: 20110928
  2. PRADAXA [Suspect]
     Indication: ATRIAL FIBRILLATION
  3. CLOPIDOGREL [Concomitant]
  4. PROTON PUMP INHIBITORS [Concomitant]

REACTIONS (3)
  - Multi-organ failure [Fatal]
  - Fall [Unknown]
  - Lower limb fracture [Unknown]
